FAERS Safety Report 18518000 (Version 1)
Quarter: 2020Q4

REPORT INFORMATION
  Report Type: Spontaneous
  Country: US (occurrence: US)
  Receive Date: 20201118
  Receipt Date: 20201118
  Transmission Date: 20210114
  Serious: No
  Sender: FDA-Public Use
  Company Number: US-PFIZER INC-2020451070

PATIENT
  Age: 76 Year
  Sex: Female
  Weight: 97.52 kg

DRUGS (2)
  1. ALPRAZOLAM. [Suspect]
     Active Substance: ALPRAZOLAM
     Indication: SLEEP DISORDER
     Dosage: 1 MG, 2X/DAY (0.5MG TWO AT BED TIME AND TWO AT NIGHT)
     Dates: start: 202001, end: 202001
  2. ALPRAZOLAM. [Suspect]
     Active Substance: ALPRAZOLAM
     Indication: ANXIETY DISORDER
     Dosage: 0.5 MG (0.5MG STRENGTH OF UNSPECIFIED FREQUENCY)
     Dates: start: 2001

REACTIONS (1)
  - Therapeutic product effect incomplete [Unknown]
